FAERS Safety Report 11202956 (Version 9)
Quarter: 2016Q4

REPORT INFORMATION
  Report Type: Spontaneous
  Country: US (occurrence: US)
  Receive Date: 20150619
  Receipt Date: 20161110
  Transmission Date: 20170206
  Serious: Yes (Other)
  Sender: FDA-Public Use
  Company Number: US-BIOMARINAP-US-2015-106624

PATIENT
  Sex: Female

DRUGS (3)
  1. ALDURAZYME [Suspect]
     Active Substance: LARONIDASE
     Indication: MUCOPOLYSACCHARIDOSIS I
     Dosage: 49.3 MG, QW
     Route: 041
     Dates: start: 20050214
  2. ALDURAZYME [Suspect]
     Active Substance: LARONIDASE
     Dosage: 49.3 MG, QW
     Route: 041
     Dates: start: 201510
  3. ALDURAZYME [Suspect]
     Active Substance: LARONIDASE
     Dosage: 49.3 MG, QW
     Route: 041
     Dates: end: 2016

REACTIONS (15)
  - Ligament rupture [Unknown]
  - Sleep disorder [Not Recovered/Not Resolved]
  - Tremor [Unknown]
  - Malaise [Unknown]
  - Palpitations [Recovering/Resolving]
  - Hypoaesthesia [Not Recovered/Not Resolved]
  - Vomiting [Recovering/Resolving]
  - Urinary tract infection [Unknown]
  - Kidney infection [Unknown]
  - Tendon rupture [Unknown]
  - Escherichia infection [Not Recovered/Not Resolved]
  - Pain [Unknown]
  - Pain in extremity [Unknown]
  - Nausea [Unknown]
  - Fall [Unknown]
